FAERS Safety Report 9674967 (Version 1)
Quarter: 2013Q4

REPORT INFORMATION
  Report Type: Spontaneous
  Country: US (occurrence: US)
  Receive Date: 20131107
  Receipt Date: 20131107
  Transmission Date: 20140711
  Serious: Yes (Other)
  Sender: FDA-Public Use
  Company Number: US-ASTELLAS-2013US011603

PATIENT
  Age: 59 Year
  Sex: Female

DRUGS (5)
  1. TARCEVA [Suspect]
     Indication: CHOLANGIOCARCINOMA
     Dosage: 150 MG, UID/QD
     Route: 048
     Dates: start: 20131024, end: 20131027
  2. ACIPHEX [Concomitant]
     Indication: GASTROOESOPHAGEAL REFLUX DISEASE
     Dosage: UNK
     Dates: end: 20131022
  3. LEVAQUIN [Concomitant]
     Indication: LEUKOPENIA
     Dosage: 500 MG, UID/QD
     Route: 048
     Dates: start: 20111004
  4. MIRALAX                            /00754501/ [Concomitant]
     Indication: CONSTIPATION
     Dosage: 17 G, UNKNOWN/D
     Route: 048
     Dates: start: 2011
  5. FLONASE [Concomitant]
     Indication: HYPERSENSITIVITY
     Dosage: UNK
     Route: 065
     Dates: start: 2012

REACTIONS (5)
  - Off label use [Unknown]
  - Dyspepsia [Not Recovered/Not Resolved]
  - Dyspepsia [Unknown]
  - Vomiting [Not Recovered/Not Resolved]
  - Vomiting [Unknown]
